FAERS Safety Report 4809873-1 (Version None)
Quarter: 2005Q4

REPORT INFORMATION
  Report Type: 
  Country: None (occurrence: None)
  Receive Date: 20051024
  Receipt Date: 20051006
  Transmission Date: 20060501
  Serious: Yes (Other)
  Sender: FDA-Public Use
  Company Number: 2005066672

PATIENT
  Age: 71 Year
  Sex: Female
  Weight: 68.0396 kg

DRUGS (8)
  1. BEXTRA [Suspect]
     Indication: ARTHRITIS
     Dosage: 20 MG (20 MG, 1 IN 1 D), ORAL
     Route: 048
     Dates: end: 20041013
  2. BEXTRA [Suspect]
     Indication: ARTHROPATHY
     Dosage: 20 MG (20 MG, 1 IN 1 D), ORAL
     Route: 048
     Dates: end: 20041013
  3. CELEBREX [Suspect]
     Indication: ANKYLOSING SPONDYLITIS
  4. VIOXX [Suspect]
     Indication: ANKYLOSING SPONDYLITIS
  5. ESTRACE [Concomitant]
  6. CALTRATE + D (CALCIUM CARBONATE, COLECALCIFEROL) [Concomitant]
  7. COSAMIN DS (ASCORBIC ACID, CHONDROITIN SULFATE SODIUM, GLUCOSAMINE HYD [Concomitant]
  8. LASIX [Concomitant]

REACTIONS (28)
  - ANTINUCLEAR ANTIBODY POSITIVE [None]
  - ARTHRALGIA [None]
  - BACK PAIN [None]
  - BURSITIS [None]
  - CONTUSION [None]
  - ECCHYMOSIS [None]
  - EXOSTOSIS [None]
  - HEADACHE [None]
  - HYPERTENSION [None]
  - INFLUENZA LIKE ILLNESS [None]
  - JOINT CREPITATION [None]
  - JOINT DISLOCATION [None]
  - JOINT EFFUSION [None]
  - JOINT RANGE OF MOTION DECREASED [None]
  - KNEE DEFORMITY [None]
  - LIGAMENT INJURY [None]
  - MENISCUS LESION [None]
  - MUSCLE SPASMS [None]
  - MUSCULOSKELETAL STIFFNESS [None]
  - MYALGIA [None]
  - NAUSEA [None]
  - NODAL OSTEOARTHRITIS [None]
  - OSTEOARTHRITIS [None]
  - OSTEOPOROSIS [None]
  - SYNOVIAL CYST [None]
  - THERAPY NON-RESPONDER [None]
  - WEIGHT DECREASED [None]
  - WEIGHT INCREASED [None]
